FAERS Safety Report 17957258 (Version 1)
Quarter: 2020Q2

REPORT INFORMATION
  Report Type: Spontaneous
  Country: DE (occurrence: DE)
  Receive Date: 20200629
  Receipt Date: 20200629
  Transmission Date: 20200714
  Serious: Yes (Other)
  Sender: FDA-Public Use
  Company Number: DE-PFIZER INC-2020244555

PATIENT
  Age: 58 Year
  Sex: Female

DRUGS (2)
  1. EXEMESTANE. [Suspect]
     Active Substance: EXEMESTANE
     Dosage: UNK
     Route: 065
     Dates: start: 201908
  2. EVEROLIMUS. [Suspect]
     Active Substance: EVEROLIMUS
     Dosage: UNK
     Route: 065
     Dates: start: 201808

REACTIONS (2)
  - Neoplasm progression [Unknown]
  - Pleural effusion [Unknown]

NARRATIVE: CASE EVENT DATE: 202005
